FAERS Safety Report 8738259 (Version 3)
Quarter: 2013Q4

REPORT INFORMATION
  Report Type: Spontaneous
  Country: JP (occurrence: JP)
  Receive Date: 20120823
  Receipt Date: 20131031
  Transmission Date: 20140711
  Serious: Yes (Life-Threatening, Other)
  Sender: FDA-Public Use
  Company Number: JP-MERCK-1208JPN006179

PATIENT
  Age: 44 Year
  Sex: Male

DRUGS (1)
  1. PROPECIA TABLETS 1MG [Suspect]
     Indication: ALOPECIA
     Dosage: 1 MG, QD
     Route: 048
     Dates: start: 2010, end: 20120721

REACTIONS (3)
  - Hepatic function abnormal [Recovering/Resolving]
  - Weight decreased [Recovering/Resolving]
  - Dermatitis [Recovering/Resolving]
